FAERS Safety Report 10222367 (Version 2)
Quarter: 2014Q2

REPORT INFORMATION
  Report Type: Report from Study
  Country: CA (occurrence: CA)
  Receive Date: 20140606
  Receipt Date: 20140606
  Transmission Date: 20141212
  Serious: Yes (Other)
  Sender: FDA-Public Use
  Company Number: CA-INCYTE CORPORATION-2013IN000956

PATIENT
  Sex: Female

DRUGS (5)
  1. JAKAVI [Suspect]
     Indication: MYELOFIBROSIS
     Dosage: 10 MG, BID
     Route: 048
     Dates: start: 20130422, end: 20140527
  2. ANTIHYPERTENSIVE DRUGS [Concomitant]
  3. ASA [Concomitant]
  4. ANTITHYROID PREPARATIONS [Concomitant]
  5. SYNTHROID [Concomitant]

REACTIONS (12)
  - Myelofibrosis [Unknown]
  - Haemoglobin decreased [Recovering/Resolving]
  - Psoriasis [Recovered/Resolved]
  - Abdominal discomfort [Unknown]
  - Asthenia [Unknown]
  - Dehydration [Unknown]
  - Feeling abnormal [Unknown]
  - Dyspnoea [Unknown]
  - Malaise [Unknown]
  - Periorbital contusion [Unknown]
  - Increased tendency to bruise [Unknown]
  - Weight increased [Unknown]
